FAERS Safety Report 9402478 (Version 2)
Quarter: 2013Q4

REPORT INFORMATION
  Report Type: Report from Study
  Country: DE (occurrence: DE)
  Receive Date: 20130716
  Receipt Date: 20131120
  Transmission Date: 20140711
  Serious: Yes (Other)
  Sender: FDA-Public Use
  Company Number: DE-ROCHE-1248912

PATIENT
  Sex: Female
  Weight: 67 kg

DRUGS (3)
  1. RANIBIZUMAB [Suspect]
     Indication: VISUAL IMPAIRMENT
     Route: 050
     Dates: start: 20121115
  2. RANIBIZUMAB [Suspect]
     Indication: MACULAR OEDEMA
     Route: 050
     Dates: start: 20130425
  3. RANIBIZUMAB [Suspect]
     Indication: RETINAL VEIN OCCLUSION

REACTIONS (1)
  - Sarcoidosis [Recovered/Resolved]
